FAERS Safety Report 10799829 (Version 1)
Quarter: 2015Q1

REPORT INFORMATION
  Report Type: Spontaneous
  Country: US (occurrence: US)
  Receive Date: 20150216
  Receipt Date: 20150216
  Transmission Date: 20150721
  Serious: No
  Sender: FDA-Public Use
  Company Number: US-ALLERGAN-1418267US

PATIENT
  Age: 69 Year
  Sex: Female

DRUGS (2)
  1. ARTIFICIAL TEARS [Concomitant]
     Active Substance: GLYCERIN\HYPROMELLOSES\POLYETHYLENE GLYCOL 400
     Dosage: UNK
  2. RESTASIS [Suspect]
     Active Substance: CYCLOSPORINE
     Indication: DRY EYE
     Dosage: 2 GTT, BID
     Route: 047
     Dates: start: 2014, end: 20140818

REACTIONS (9)
  - Ocular hyperaemia [Unknown]
  - Foreign body sensation in eyes [Unknown]
  - Scleral hyperaemia [Unknown]
  - Eye pruritus [Not Recovered/Not Resolved]
  - Eyelid rash [Not Recovered/Not Resolved]
  - Incorrect dose administered [Unknown]
  - Eye irritation [Not Recovered/Not Resolved]
  - Eye irritation [Not Recovered/Not Resolved]
  - Vision blurred [Unknown]

NARRATIVE: CASE EVENT DATE: 20140818
